FAERS Safety Report 5870462-1 (Version None)
Quarter: 2008Q3

REPORT INFORMATION
  Report Type: 
  Country: None (occurrence: None)
  Receive Date: 20080904
  Receipt Date: 20071008
  Transmission Date: 20090109
  Serious: No
  Sender: FDA-Public Use
  Company Number: US-BRISTOL-MYERS SQUIBB COMPANY-13933817

PATIENT
  Age: 85 Year
  Sex: Female
  Weight: 62 kg

DRUGS (1)
  1. DEFINITY [Suspect]

REACTIONS (3)
  - BACK PAIN [None]
  - DYSPNOEA [None]
  - WHEEZING [None]
